FAERS Safety Report 7693781-5 (Version None)
Quarter: 2011Q3

REPORT INFORMATION
  Report Type: 
  Country: None (occurrence: None)
  Receive Date: 20110819
  Receipt Date: 20110805
  Transmission Date: 20111222
  Serious: Yes (Hospitalization)
  Sender: FDA-Public Use
  Company Number: US-ELI_LILLY_AND_COMPANY-US201106001641

PATIENT
  Sex: Female
  Weight: 73.469 kg

DRUGS (3)
  1. ISONIAZID [Concomitant]
     Dosage: 300 MG, EACH MORNING
  2. ZYPREXA [Suspect]
     Indication: SCHIZOPHRENIA
     Dosage: 20 MG, EACH EVENING
     Route: 048
     Dates: end: 20110701
  3. SEROQUEL [Concomitant]
     Dosage: 200 MG, EACH EVENING

REACTIONS (2)
  - SCHIZOPHRENIA [None]
  - INTENTIONAL DRUG MISUSE [None]
